FAERS Safety Report 8790249 (Version 1)
Quarter: 2012Q4

REPORT INFORMATION
  Report Type: 
  Country: US (occurrence: US)
  Receive Date: 20120917
  Receipt Date: 20120917
  Transmission Date: 20130627
  Serious: No
  Sender: FDA-Public Use
  Company Number: US-BAYER-2012-096068

PATIENT
  Sex: Male

DRUGS (1)
  1. GADAVIST [Suspect]
     Dosage: UNK
     Dates: start: 201209, end: 201209

REACTIONS (1)
  - Lip swelling [None]
